FAERS Safety Report 13477700 (Version 1)
Quarter: 2017Q2

REPORT INFORMATION
  Report Type: Spontaneous
  Country: US (occurrence: US)
  Receive Date: 20170425
  Receipt Date: 20170425
  Transmission Date: 20170830
  Serious: No
  Sender: FDA-Public Use
  Company Number: US-SHIRE-US201709263

PATIENT
  Sex: Female

DRUGS (1)
  1. XIIDRA [Suspect]
     Active Substance: LIFITEGRAST
     Indication: DRY EYE
     Dosage: 1 GTT (EACH EYE), 2X/DAY:BID
     Route: 047

REACTIONS (6)
  - Hypoaesthesia oral [Recovered/Resolved]
  - Oral discomfort [Recovered/Resolved]
  - Lip pain [Recovered/Resolved]
  - Instillation site discharge [Recovered/Resolved]
  - Glossodynia [Recovered/Resolved]
  - Tongue discomfort [Recovered/Resolved]
